FAERS Safety Report 5151228-7 (Version None)
Quarter: 2006Q4

REPORT INFORMATION
  Report Type: 
  Country: None (occurrence: None)
  Receive Date: 20061113
  Receipt Date: 20061113
  Transmission Date: 20070319
  Serious: Yes (Hospitalization)
  Sender: FDA-Public Use
  Company Number: None

PATIENT
  Age: 78 Year
  Sex: Male
  Weight: 88 kg

DRUGS (1)
  1. AMIODARONE HCL [Suspect]
     Indication: DEVICE ELECTRICAL FINDING
     Dosage: 400 MG ONCE DAILY PO
     Route: 048
     Dates: start: 20060202, end: 20061107

REACTIONS (4)
  - ALVEOLITIS [None]
  - COUGH [None]
  - DYSPNOEA [None]
  - PULMONARY TOXICITY [None]
